FAERS Safety Report 25657344 (Version 2)
Quarter: 2025Q3

REPORT INFORMATION
  Report Type: Report from Study
  Country: EU (occurrence: EU)
  Receive Date: 20250808
  Receipt Date: 20250811
  Transmission Date: 20251021
  Serious: Yes (Life-Threatening)
  Sender: CELLTRION
  Company Number: EU-CELLTRION INC.-2025IT026243

PATIENT

DRUGS (11)
  1. INFLIXIMAB-DYYB [Suspect]
     Active Substance: INFLIXIMAB-DYYB
     Indication: Rheumatoid arthritis
     Dosage: 120 MG EVERY 2 WEEKS
     Route: 058
     Dates: start: 20241002
  2. INFLIXIMAB-DYYB [Suspect]
     Active Substance: INFLIXIMAB-DYYB
     Dosage: 120 MG EVERY 2 WEEKS
     Route: 058
     Dates: start: 20241009
  3. INFLIXIMAB-DYYB [Suspect]
     Active Substance: INFLIXIMAB-DYYB
     Dosage: 120 MG EVERY 2 WEEKS
     Route: 058
     Dates: start: 20241016
  4. INFLIXIMAB-DYYB [Suspect]
     Active Substance: INFLIXIMAB-DYYB
     Dosage: 120 MG EVERY 2 WEEKS
     Route: 058
     Dates: start: 20241023
  5. INFLIXIMAB-DYYB [Suspect]
     Active Substance: INFLIXIMAB-DYYB
     Dosage: 120 MG EVERY 2 WEEKS
     Route: 058
     Dates: start: 20241030
  6. INFLIXIMAB-DYYB [Suspect]
     Active Substance: INFLIXIMAB-DYYB
     Dosage: 120 MG EVERY 2 WEEKS
     Route: 058
     Dates: start: 20241113
  7. INFLIXIMAB-DYYB [Suspect]
     Active Substance: INFLIXIMAB-DYYB
     Dosage: 120 MG EVERY 2 WEEKS
     Route: 058
     Dates: start: 20241227
  8. INFLIXIMAB-DYYB [Suspect]
     Active Substance: INFLIXIMAB-DYYB
     Dosage: 120 MG EVERY 2 WEEKS (LAST ADMINISTRATION DATE BEFORE AE 1)
     Route: 058
     Dates: start: 20250103
  9. TREXOTHER [Concomitant]
     Indication: Rheumatoid arthritis
     Route: 048
     Dates: start: 20241002
  10. FOLIC ACID [Concomitant]
     Active Substance: FOLIC ACID
     Indication: Drug toxicity prophylaxis
     Dosage: 5 MG, ONCE PER WEEK (1 TABLET 24 HOURS AFTER TREXOTHER, 1 TABLET 48 HOURS AFTER)
     Route: 048
     Dates: start: 20241002
  11. DYMISTA [Concomitant]
     Active Substance: AZELASTINE HYDROCHLORIDE\FLUTICASONE PROPIONATE
     Indication: Hypersensitivity
     Route: 055

REACTIONS (1)
  - Thyroid neoplasm [Not Recovered/Not Resolved]

NARRATIVE: CASE EVENT DATE: 20250101
